FAERS Safety Report 4976327-1 (Version None)
Quarter: 2006Q2

REPORT INFORMATION
  Report Type: 
  Country: None (occurrence: None)
  Receive Date: 20060419
  Receipt Date: 20060407
  Transmission Date: 20061013
  Serious: Yes (Hospitalization)
  Sender: FDA-Public Use
  Company Number: IN-SANOFI-SYNTHELABO-F01200600998

PATIENT
  Sex: Male

DRUGS (4)
  1. CLOPIDOGREL [Suspect]
     Indication: CEREBROVASCULAR ACCIDENT
     Route: 048
     Dates: start: 20051213, end: 20060322
  2. AGGRENOX [Suspect]
     Dates: start: 20051213, end: 20060322
  3. ASPIRIN [Concomitant]
     Indication: CEREBROVASCULAR ACCIDENT
     Route: 048
  4. MICARDIS [Concomitant]
     Dates: start: 20051213, end: 20060322

REACTIONS (2)
  - DUODENAL ULCER [None]
  - DUODENITIS [None]
